FAERS Safety Report 11275322 (Version 1)
Quarter: 2015Q3

REPORT INFORMATION
  Report Type: Spontaneous
  Country: US (occurrence: None)
  Receive Date: 20150714
  Receipt Date: 20150714
  Transmission Date: 20151125
  Serious: Yes (Hospitalization, Other)
  Sender: FDA-Public Use
  Company Number: US-H14001-15-01087

PATIENT
  Age: 44 Year
  Sex: Female

DRUGS (6)
  1. VALPROATE [Suspect]
     Active Substance: VALPROIC ACID
     Indication: SEIZURE
  2. TOPIRAMATE (TOPIRAMATE) (UNKNOWN) (TOPIRAMATE) [Suspect]
     Active Substance: TOPIRAMATE
     Indication: PRODUCT USED FOR UNKNOWN INDICATION
  3. DIVALPROEX SODIUM (VALPROATE SEMISODIUM) [Suspect]
     Active Substance: DIVALPROEX SODIUM
     Indication: PRODUCT USED FOR UNKNOWN INDICATION
  4. LEVOTHYROXINE. [Concomitant]
     Active Substance: LEVOTHYROXINE
  5. PHENOBARBITAL (PHENOBARBITAL) [Suspect]
     Active Substance: PHENOBARBITAL
     Indication: PRODUCT USED FOR UNKNOWN INDICATION
  6. LEVETIRACETAM. [Concomitant]
     Active Substance: LEVETIRACETAM

REACTIONS (9)
  - Drug interaction [None]
  - Haematocrit decreased [None]
  - Adrenal insufficiency [None]
  - Blood potassium decreased [None]
  - Blood albumin decreased [None]
  - Anticonvulsant drug level below therapeutic [None]
  - Hyperammonaemic encephalopathy [None]
  - Haemoglobin decreased [None]
  - Toxicity to various agents [None]
